FAERS Safety Report 8435787-4 (Version None)
Quarter: 2012Q2

REPORT INFORMATION
  Report Type: 
  Country: None (occurrence: None)
  Receive Date: 20120614
  Receipt Date: 20120604
  Transmission Date: 20120825
  Serious: Yes (Hospitalization, Other)
  Sender: FDA-Public Use
  Company Number: US-ELI_LILLY_AND_COMPANY-US201101002147

PATIENT
  Sex: Female

DRUGS (3)
  1. FORTEO [Suspect]
     Indication: OSTEOPOROSIS
     Dosage: 20 UG, QD
     Route: 065
     Dates: start: 20100901, end: 20111201
  2. FORTEO [Suspect]
     Dosage: 20 UG, QD
     Dates: start: 20120501
  3. FORTEO [Suspect]
     Dosage: 20 UG, QD
     Route: 065
     Dates: start: 20100901, end: 20111201

REACTIONS (3)
  - DRUG DOSE OMISSION [None]
  - TRANSIENT ISCHAEMIC ATTACK [None]
  - FEAR [None]
